FAERS Safety Report 5651520-3 (Version None)
Quarter: 2008Q1

REPORT INFORMATION
  Report Type: 
  Country: None (occurrence: None)
  Receive Date: 20080305
  Receipt Date: 20080223
  Transmission Date: 20080703
  Serious: Yes (Other)
  Sender: FDA-Public Use
  Company Number: TR-ELI_LILLY_AND_COMPANY-TR200802005836

PATIENT
  Age: 69 Year
  Sex: Female
  Weight: 70 kg

DRUGS (7)
  1. HUMULIN N [Suspect]
     Indication: TYPE 2 DIABETES MELLITUS
     Dosage: 6 UNITS/MORNING AND 8UNITS/EVENING
     Route: 058
     Dates: start: 20080101
  2. HUMULIN N [Suspect]
     Dosage: 8 U, EACH EVENING
     Route: 058
     Dates: start: 20080101
  3. TEFOR [Concomitant]
     Indication: THYROID DISORDER
     Dosage: UNK, DAILY (1/D)
     Route: 048
     Dates: start: 20070101
  4. LANZOR [Concomitant]
     Indication: PROPHYLAXIS
     Dosage: UNK, DAILY (1/D)
     Route: 048
  5. APIKOBAL [Concomitant]
     Dosage: UNK, 2/D
     Route: 048
  6. TEBOKAN [Concomitant]
     Dosage: UNK, 2/D
     Route: 048
  7. NOOTROPIL [Concomitant]
     Dosage: UNK, 2/D
     Route: 065

REACTIONS (4)
  - ARRHYTHMIA [None]
  - BLOOD GLUCOSE INCREASED [None]
  - CARDIAC DISORDER [None]
  - VASCULAR GRAFT [None]
